FAERS Safety Report 4493368-1 (Version None)
Quarter: 2004Q4

REPORT INFORMATION
  Report Type: 
  Country: None (occurrence: None)
  Receive Date: 20041104
  Receipt Date: 20041029
  Transmission Date: 20050328
  Serious: Yes (Hospitalization)
  Sender: FDA-Public Use
  Company Number: CH-MERCK-0410CHE00057

PATIENT
  Age: 83 Year
  Sex: Female
  Weight: 71 kg

DRUGS (9)
  1. FOSAMAX [Suspect]
     Indication: OSTEOPOROSIS POSTMENOPAUSAL
     Route: 048
  2. DICLOFENAC SODIUM AND MISOPROSTOL [Suspect]
     Route: 048
     Dates: end: 20040901
  3. ACENOCOUMAROL [Suspect]
     Indication: CARDIAC ANEURYSM
     Route: 048
     Dates: end: 20040901
  4. CALCIUM CARBONATE AND CHOLECALCIFEROL [Concomitant]
     Indication: OSTEOPOROSIS POSTMENOPAUSAL
     Route: 048
  5. GLICLAZIDE [Concomitant]
     Indication: DIABETES MELLITUS NON-INSULIN-DEPENDENT
     Route: 048
  6. ATORVASTATIN CALCIUM [Concomitant]
     Indication: HYPERCHOLESTEROLAEMIA
     Route: 048
  7. TORSEMIDE [Concomitant]
     Indication: CARDIAC FAILURE
     Route: 048
  8. METOPROLOL SUCCINATE [Concomitant]
     Indication: CARDIAC FAILURE
     Route: 048
  9. ASPIRIN [Concomitant]
     Indication: CARDIAC ANEURYSM
     Route: 048

REACTIONS (5)
  - DRUG INTERACTION [None]
  - FALL [None]
  - GASTROENTERITIS [None]
  - NORMOCHROMIC NORMOCYTIC ANAEMIA [None]
  - PEPTIC ULCER HAEMORRHAGE [None]
